FAERS Safety Report 8384794-9 (Version None)
Quarter: 2012Q2

REPORT INFORMATION
  Report Type: 
  Country: None (occurrence: None)
  Receive Date: 20120524
  Receipt Date: 20120514
  Transmission Date: 20120825
  Serious: Yes (Congenital Anomaly)
  Sender: FDA-Public Use
  Company Number: FR-ROCHE-1069146

PATIENT
  Sex: Female

DRUGS (2)
  1. IMUREL [Suspect]
     Indication: GLOMERULONEPHRITIS
     Route: 064
     Dates: start: 20110907, end: 20120413
  2. CELLCEPT [Suspect]
     Indication: GLOMERULONEPHRITIS
     Route: 064
     Dates: end: 20110715

REACTIONS (4)
  - MICROPHTHALMOS [None]
  - EXTERNAL AUDITORY CANAL ATRESIA [None]
  - EXTERNAL EAR DISORDER [None]
  - COLOBOMA [None]
